FAERS Safety Report 7150153-X (Version None)
Quarter: 2010Q4

REPORT INFORMATION
  Report Type: 
  Country: None (occurrence: None)
  Receive Date: 20101123
  Receipt Date: 20100819
  Transmission Date: 20110411
  Serious: No
  Sender: FDA-Public Use
  Company Number: 003427

PATIENT
  Sex: Male

DRUGS (1)
  1. CIMZIA [Suspect]
     Indication: CROHN'S DISEASE
     Dosage: SUBCUTANEOUS, 200MG 1X2 WEEKS SUBCUTANEOUS
     Route: 058
     Dates: start: 20090115

REACTIONS (2)
  - ABDOMINAL PAIN [None]
  - DIARRHOEA [None]
